FAERS Safety Report 9885085 (Version 3)
Quarter: 2014Q2

REPORT INFORMATION
  Report Type: Spontaneous
  Country: JP (occurrence: JP)
  Receive Date: 20140210
  Receipt Date: 20140408
  Transmission Date: 20141212
  Serious: Yes (Hospitalization, Other)
  Sender: FDA-Public Use
  Company Number: JP-SA-2014SA010642

PATIENT
  Age: 40 Year
  Sex: Male

DRUGS (2)
  1. AVAPRO [Suspect]
     Indication: PRODUCT USED FOR UNKNOWN INDICATION
     Route: 048
  2. NIFEDIPINE [Suspect]
     Indication: PRODUCT USED FOR UNKNOWN INDICATION
     Route: 048

REACTIONS (9)
  - Respiratory rate increased [Unknown]
  - Intentional overdose [Unknown]
  - Somnolence [Unknown]
  - Hypotension [Recovering/Resolving]
  - Peripheral coldness [Recovering/Resolving]
  - Heart rate increased [Recovering/Resolving]
  - Body temperature decreased [Recovering/Resolving]
  - Lethargy [Unknown]
  - Medication error [Unknown]
